FAERS Safety Report 6009312-1 (Version None)
Quarter: 2008Q4

REPORT INFORMATION
  Report Type: 
  Country: None (occurrence: None)
  Receive Date: 20081217
  Receipt Date: 20081209
  Transmission Date: 20090506
  Serious: Yes (Other)
  Sender: FDA-Public Use
  Company Number: JP-GILEAD-2008-0019437

PATIENT
  Age: 39 Year
  Sex: Female

DRUGS (3)
  1. VIREAD [Suspect]
     Indication: HIV INFECTION
     Route: 048
     Dates: start: 20051001
  2. EPIVIR [Concomitant]
     Indication: HIV INFECTION
     Dates: start: 20051001
  3. KALETRA [Concomitant]
     Indication: HIV INFECTION
     Dates: start: 20051001

REACTIONS (1)
  - GAIT SPASTIC [None]
